FAERS Safety Report 6479266-2 (Version None)
Quarter: 2009Q4

REPORT INFORMATION
  Report Type: 
  Country: None (occurrence: None)
  Receive Date: 20091207
  Receipt Date: 20090310
  Transmission Date: 20100525
  Serious: No
  Sender: FDA-Public Use
  Company Number: US-AMGEN-KDL334649

PATIENT
  Sex: Female
  Weight: 67.6 kg

DRUGS (4)
  1. ENBREL [Suspect]
     Indication: RHEUMATOID ARTHRITIS
     Route: 058
     Dates: start: 20090116
  2. METHOTREXATE [Concomitant]
     Dates: start: 20090226
  3. DARVOCET-N 100 [Concomitant]
  4. XANAX [Concomitant]

REACTIONS (12)
  - BLADDER PAIN [None]
  - BURNING SENSATION [None]
  - CERVIX DISORDER [None]
  - DYSGEUSIA [None]
  - DYSPEPSIA [None]
  - ERYTHEMA [None]
  - NODULE ON EXTREMITY [None]
  - OCULAR ICTERUS [None]
  - PAIN IN EXTREMITY [None]
  - RASH ERYTHEMATOUS [None]
  - RENAL PAIN [None]
  - RHEUMATOID ARTHRITIS [None]
